FAERS Safety Report 19016152 (Version 2)
Quarter: 2021Q3

REPORT INFORMATION
  Report Type: Spontaneous
  Country: US (occurrence: US)
  Receive Date: 20210317
  Receipt Date: 20210913
  Transmission Date: 20211014
  Serious: No
  Sender: FDA-Public Use
  Company Number: US-GLOBAL BLOOD THERAPEUTICS INC-US-GBT-20-04247

PATIENT
  Sex: Male
  Weight: 57 kg

DRUGS (3)
  1. OXBRYTA [Suspect]
     Active Substance: VOXELOTOR
     Route: 048
     Dates: start: 2020, end: 20201222
  2. OXBRYTA [Suspect]
     Active Substance: VOXELOTOR
     Indication: SICKLE CELL DISEASE
     Route: 048
     Dates: start: 202010, end: 2020
  3. OXBRYTA [Suspect]
     Active Substance: VOXELOTOR
     Route: 048
     Dates: start: 20210126, end: 2021

REACTIONS (3)
  - Therapy non-responder [Unknown]
  - Thrombocytosis [Unknown]
  - Therapy cessation [Unknown]

NARRATIVE: CASE EVENT DATE: 2020
